FAERS Safety Report 5486547-8 (Version None)
Quarter: 2007Q4

REPORT INFORMATION
  Report Type: 
  Country: None (occurrence: None)
  Receive Date: 20071012
  Receipt Date: 20071003
  Transmission Date: 20080405
  Serious: Yes (Hospitalization, Other)
  Sender: FDA-Public Use
  Company Number: 2007BI021232

PATIENT
  Age: 62 Year
  Sex: Male

DRUGS (1)
  1. NATALIZUMAB [Suspect]
     Indication: MULTIPLE SCLEROSIS
     Dosage: 300 MG; QM; IV
     Route: 042
     Dates: start: 20070402

REACTIONS (4)
  - ANXIETY [None]
  - CHOLECYSTECTOMY [None]
  - PARTIAL SEIZURES [None]
  - UROSEPSIS [None]
